FAERS Safety Report 26190709 (Version 1)
Quarter: 2025Q4

REPORT INFORMATION
  Report Type: Spontaneous
  Country: MA (occurrence: MA)
  Receive Date: 20251223
  Receipt Date: 20251223
  Transmission Date: 20260118
  Serious: Yes (Other)
  Sender: RANBAXY
  Company Number: MA-SUN PHARMACEUTICAL INDUSTRIES LTD-2025RR-542691

PATIENT
  Age: 67 Year
  Sex: Male

DRUGS (1)
  1. FLUTICASONE PROPIONATE\SALMETEROL XINAFOATE [Suspect]
     Active Substance: FLUTICASONE PROPIONATE\SALMETEROL XINAFOATE
     Indication: Asthma
     Dosage: 1000 MICROGRAM, DAILY, FP, 1000 ?G/ DAY
     Route: 065

REACTIONS (4)
  - Oesophageal candidiasis [Unknown]
  - Dysphonia [Unknown]
  - Wrong technique in product usage process [Unknown]
  - Infection [Unknown]
